FAERS Safety Report 10344577 (Version 1)
Quarter: 2014Q3

REPORT INFORMATION
  Report Type: Spontaneous
  Country: US (occurrence: None)
  Receive Date: 20140724
  Receipt Date: 20140724
  Transmission Date: 20150326
  Serious: Yes (Disabling)
  Sender: FDA-Public Use
  Company Number: None

PATIENT
  Age: 51 Year
  Sex: Female
  Weight: 49.9 kg

DRUGS (1)
  1. DELZICOL [Suspect]
     Active Substance: MESALAMINE
     Indication: COLITIS ULCERATIVE
     Route: 048
     Dates: start: 20131118

REACTIONS (10)
  - Colitis ulcerative [None]
  - Visual impairment [None]
  - Confusional state [None]
  - Insomnia [None]
  - Rectal haemorrhage [None]
  - Dyspepsia [None]
  - Vision blurred [None]
  - Therapeutic product ineffective [None]
  - Abdominal pain [None]
  - Blepharospasm [None]

NARRATIVE: CASE EVENT DATE: 20140303
